FAERS Safety Report 23265990 (Version 1)
Quarter: 2023Q4

REPORT INFORMATION
  Report Type: Spontaneous
  Country: US (occurrence: US)
  Receive Date: 20231206
  Receipt Date: 20231206
  Transmission Date: 20240110
  Serious: Yes (Hospitalization)
  Sender: FDA-Public Use
  Company Number: US-STRIDES ARCOLAB LIMITED-2023SP018050

PATIENT
  Age: 67 Year
  Sex: Male

DRUGS (1)
  1. OXYCODONE [Suspect]
     Active Substance: OXYCODONE
     Indication: Depression
     Dosage: UNK; TEN 30 MILLIGRAM TABLETS
     Route: 065

REACTIONS (8)
  - Suicide attempt [Unknown]
  - Splenomegaly [Unknown]
  - Hepatic steatosis [Unknown]
  - Fat necrosis [Unknown]
  - Miosis [Unknown]
  - Syncope [Recovered/Resolved]
  - Overdose [Unknown]
  - Off label use [Unknown]
